FAERS Safety Report 18356257 (Version 1)
Quarter: 2020Q4

REPORT INFORMATION
  Report Type: Report from Study
  Country: CO (occurrence: CO)
  Receive Date: 20201007
  Receipt Date: 20201007
  Transmission Date: 20210114
  Serious: Yes (Hospitalization, Other)
  Sender: FDA-Public Use
  Company Number: CO-JNJFOC-20200137533

PATIENT
  Age: 5 Decade
  Sex: Male
  Weight: 75 kg

DRUGS (7)
  1. CALCITRIOL. [Concomitant]
     Active Substance: CALCITRIOL
  2. REMICADE [Suspect]
     Active Substance: INFLIXIMAB
     Dosage: LAST ADMINISTRATION ON 19-AUG-2020
     Route: 042
  3. AZATHIOPRINE. [Concomitant]
     Active Substance: AZATHIOPRINE
  4. CALCITRIOL. [Concomitant]
     Active Substance: CALCITRIOL
     Dosage: ONE PER DAY
  5. AZATHIOPRINE. [Concomitant]
     Active Substance: AZATHIOPRINE
     Dosage: THREE PER DAY
  6. ACETAMINOPHEN. [Concomitant]
     Active Substance: ACETAMINOPHEN
  7. REMICADE [Suspect]
     Active Substance: INFLIXIMAB
     Indication: CROHN^S DISEASE
     Route: 042
     Dates: start: 20191004

REACTIONS (19)
  - Tongue ulceration [Not Recovered/Not Resolved]
  - Body temperature decreased [Unknown]
  - Rheumatoid arthritis [Not Recovered/Not Resolved]
  - Haematochezia [Not Recovered/Not Resolved]
  - Skin laceration [Not Recovered/Not Resolved]
  - Pyrexia [Not Recovered/Not Resolved]
  - Chills [Not Recovered/Not Resolved]
  - Product use issue [Unknown]
  - Ocular hyperaemia [Unknown]
  - Diarrhoea [Not Recovered/Not Resolved]
  - Malaise [Unknown]
  - Oropharyngeal plaque [Not Recovered/Not Resolved]
  - Headache [Not Recovered/Not Resolved]
  - Influenza [Unknown]
  - Off label use [Unknown]
  - Discomfort [Not Recovered/Not Resolved]
  - Arthralgia [Not Recovered/Not Resolved]
  - Pruritus [Unknown]
  - Skin lesion [Not Recovered/Not Resolved]

NARRATIVE: CASE EVENT DATE: 2019
